FAERS Safety Report 6317574-6 (Version None)
Quarter: 2009Q3

REPORT INFORMATION
  Report Type: 
  Country: None (occurrence: None)
  Receive Date: 20090821
  Receipt Date: 20090813
  Transmission Date: 20100115
  Serious: Yes (Hospitalization)
  Sender: FDA-Public Use
  Company Number: CH-ROCHE-650360

PATIENT
  Age: 47 Year
  Sex: Male

DRUGS (13)
  1. RIVOTRIL [Suspect]
     Indication: DRUG USE FOR UNKNOWN INDICATION
     Dosage: LONG TERM TREATMENT
     Route: 048
  2. DURAGESIC-100 [Interacting]
     Indication: DRUG USE FOR UNKNOWN INDICATION
     Route: 003
     Dates: end: 20090401
  3. DURAGESIC-100 [Interacting]
     Dosage: DOSE INCREASED
     Route: 003
     Dates: start: 20090401
  4. MORPHINE [Interacting]
     Dosage: 2 DOSES OF 5 MG IN TOTAL
     Route: 048
     Dates: start: 20090421, end: 20090421
  5. DALMADORM [Interacting]
     Indication: DRUG USE FOR UNKNOWN INDICATION
     Dosage: LONG TERM
     Route: 048
  6. LANTUS [Concomitant]
     Dosage: LONG TERM TREATMENT
     Route: 058
  7. SEROQUEL [Concomitant]
     Dosage: LONG TERM TREATMENT
     Route: 048
  8. BECOZYM [Concomitant]
     Dosage: LONG TERM TREATMENT
     Route: 048
  9. BENERVA [Concomitant]
     Dosage: LONG TERM TREATMENT
     Route: 048
  10. FOLVITE [Concomitant]
     Dosage: LONG TERM TREATMENT
     Route: 048
  11. KONAKION [Concomitant]
     Dosage: LONG TERM TREATMENT
     Route: 048
  12. ALDACTONE [Concomitant]
     Dosage: LONG TERM TREATMENT
     Route: 048
  13. NEXIUM [Concomitant]
     Dosage: LONG TERM TREATMENT
     Route: 048

REACTIONS (2)
  - DRUG INTERACTION [None]
  - RESPIRATORY FAILURE [None]
